FAERS Safety Report 11881584 (Version 1)
Quarter: 2015Q4

REPORT INFORMATION
  Report Type: Spontaneous
  Country: US (occurrence: US)
  Receive Date: 20151231
  Receipt Date: 20151231
  Transmission Date: 20160305
  Serious: No
  Sender: FDA-Public Use
  Company Number: PHEH2015US027372

PATIENT
  Sex: Female

DRUGS (3)
  1. VOLTAREN XR [Suspect]
     Active Substance: DICLOFENAC SODIUM
     Indication: DYSPEPSIA
     Dosage: 100 MG, QD
     Route: 048
     Dates: start: 199704
  2. DICLOFENAC SODIUM. [Suspect]
     Active Substance: DICLOFENAC SODIUM
     Indication: PRODUCT USED FOR UNKNOWN INDICATION
     Dosage: UNK UNK, QD
     Route: 048
  3. PRILOSEC [Suspect]
     Active Substance: OMEPRAZOLE MAGNESIUM
     Indication: GASTRIC DISORDER
     Dosage: 10 MG, BID
     Route: 048

REACTIONS (3)
  - Product use issue [Unknown]
  - Gastric disorder [Unknown]
  - Drug ineffective [Unknown]
